FAERS Safety Report 19083165 (Version 1)
Quarter: 2021Q2

REPORT INFORMATION
  Report Type: Spontaneous
  Country: CO (occurrence: CO)
  Receive Date: 20210401
  Receipt Date: 20210401
  Transmission Date: 20210717
  Serious: Yes (Other)
  Sender: FDA-Public Use
  Company Number: CO-PFIZER INC-2021314265

PATIENT
  Age: 37 Year
  Sex: Female

DRUGS (2)
  1. FULVESTRANT. [Concomitant]
     Active Substance: FULVESTRANT
     Dosage: UNK, CYCLIC (EVERY 28 DAYS)
  2. REAMPLA [Suspect]
     Active Substance: PALBOCICLIB
     Indication: BREAST CANCER METASTATIC
     Dosage: 125 MG, CYCLIC (1 DAILY FOR 21 DAYS AND REST 7 DAYS)
     Route: 048
     Dates: start: 20201130

REACTIONS (10)
  - Intermenstrual bleeding [Unknown]
  - Neoplasm progression [Unknown]
  - Spinal pain [Unknown]
  - Vomiting [Recovering/Resolving]
  - Cancer pain [Recovering/Resolving]
  - Abdominal pain [Unknown]
  - Amenorrhoea [Unknown]
  - Premature menopause [Unknown]
  - Dysstasia [Recovering/Resolving]
  - Oligomenorrhoea [Unknown]

NARRATIVE: CASE EVENT DATE: 202011
